FAERS Safety Report 4319759-7 (Version None)
Quarter: 2004Q1

REPORT INFORMATION
  Report Type: 
  Country: None (occurrence: None)
  Receive Date: 20040319
  Receipt Date: 20040213
  Transmission Date: 20041129
  Serious: Yes (Other)
  Sender: FDA-Public Use
  Company Number: JP-GLAXOSMITHKLINE-B0323495A

PATIENT
  Age: 62 Year
  Sex: Female

DRUGS (6)
  1. PAXIL [Suspect]
     Indication: DEPRESSION
     Route: 048
  2. PAXIL [Suspect]
     Dosage: 40MG PER DAY
     Route: 048
  3. PAXIL [Suspect]
     Dosage: 30MG PER DAY
     Route: 048
  4. ETIZOLAM [Concomitant]
     Dosage: 1MG THREE TIMES PER DAY
     Route: 048
  5. BROTIZOLAM [Concomitant]
     Route: 048
  6. NITRAZEPAM [Concomitant]
     Route: 048

REACTIONS (3)
  - INFECTION [None]
  - PYREXIA [None]
  - SEROTONIN SYNDROME [None]
